FAERS Safety Report 9484959 (Version 1)
Quarter: 2013Q3

REPORT INFORMATION
  Report Type: Spontaneous
  Country: US (occurrence: US)
  Receive Date: 20130828
  Receipt Date: 20130828
  Transmission Date: 20140515
  Serious: No
  Sender: FDA-Public Use
  Company Number: US-ABBOTT-13P-163-1102953-00

PATIENT
  Sex: Male
  Weight: 81.72 kg

DRUGS (3)
  1. ANDROGEL [Suspect]
     Indication: BLOOD TESTOSTERONE DECREASED
     Dosage: 2 PUMPS
     Route: 061
     Dates: start: 201211
  2. ANDROGEL [Suspect]
     Indication: BLOOD TESTOSTERONE DECREASED
     Dosage: SWITCHED TO 1.62%
  3. UNKNOWN MEDICATIONS [Concomitant]
     Indication: PRODUCT USED FOR UNKNOWN INDICATION

REACTIONS (3)
  - Penile size reduced [Not Recovered/Not Resolved]
  - Testicular atrophy [Not Recovered/Not Resolved]
  - Dysuria [Not Recovered/Not Resolved]
